FAERS Safety Report 22081868 (Version 1)
Quarter: 2023Q1

REPORT INFORMATION
  Report Type: Other
  Country: US (occurrence: None)
  Receive Date: 20230310
  Receipt Date: 20230310
  Transmission Date: 20230418
  Serious: Yes (Other)
  Sender: FDA-Public Use
  Company Number: US-ROCHE-3299537

PATIENT
  Age: 44 Year
  Sex: Female

DRUGS (1)
  1. OCREVUS [Suspect]
     Active Substance: OCRELIZUMAB
     Indication: Relapsing multiple sclerosis
     Dosage: 600 MG EVERY 6 MONTH, DATE OF TREATMENT: 03/OCT/2022, 21/JUL/2022, 25/FEB/2022
     Route: 042

REACTIONS (2)
  - Multiple sclerosis [Unknown]
  - Energy increased [Unknown]
